FAERS Safety Report 11634007 (Version 4)
Quarter: 2016Q2

REPORT INFORMATION
  Report Type: Spontaneous
  Country: US (occurrence: US)
  Receive Date: 20151015
  Receipt Date: 20160408
  Transmission Date: 20160815
  Serious: No
  Sender: FDA-Public Use
  Company Number: PHEH2015US020557

PATIENT
  Sex: Female

DRUGS (2)
  1. TOBRAMYCIN. [Suspect]
     Active Substance: TOBRAMYCIN
     Indication: BRONCHITIS
  2. TOBRAMYCIN. [Suspect]
     Active Substance: TOBRAMYCIN
     Indication: PNEUMONIA
     Dosage: (BID FOR 28 DAYS, THEN OFF FOR 28 DAYS)
     Route: 065

REACTIONS (7)
  - Device malfunction [Not Recovered/Not Resolved]
  - Alopecia [Unknown]
  - Off label use [Not Recovered/Not Resolved]
  - Hair texture abnormal [Not Recovered/Not Resolved]
  - Incorrect dose administered [Not Recovered/Not Resolved]
  - Trichorrhexis [Not Recovered/Not Resolved]
  - Device leakage [Not Recovered/Not Resolved]
